FAERS Safety Report 9528196 (Version 2)
Quarter: 2013Q4

REPORT INFORMATION
  Report Type: Report from Study
  Country: NL (occurrence: NL)
  Receive Date: 20130917
  Receipt Date: 20131014
  Transmission Date: 20140711
  Serious: Yes (Death)
  Sender: FDA-Public Use
  Company Number: PHHY2013NL102617

PATIENT
  Age: 83 Year
  Sex: Female

DRUGS (4)
  1. ZOMETA [Suspect]
     Indication: METAPLASTIC BREAST CARCINOMA
     Dosage: 4 MG/100 ML, ONCE PER 4 WEEKS
     Route: 042
     Dates: start: 201306
  2. ZOMETA [Suspect]
     Dosage: 4 MG/100 ML, ONCE PER 4 WEEKS
     Route: 042
     Dates: start: 20130709
  3. ZOMETA [Suspect]
     Dosage: 4 MG/100 ML, ONCE PER 4 WEEKS
     Route: 042
     Dates: start: 20130806
  4. ZOMETA [Suspect]
     Dosage: 4 MG/100 ML, ONCE PER 4 WEEKS
     Route: 042
     Dates: start: 20130903

REACTIONS (2)
  - Breast cancer metastatic [Fatal]
  - Metastases to bone [Fatal]
